FAERS Safety Report 5962962-0 (Version None)
Quarter: 2008Q4

REPORT INFORMATION
  Report Type: 
  Country: None (occurrence: None)
  Receive Date: 20081120
  Receipt Date: 20081105
  Transmission Date: 20090506
  Serious: Yes (Other)
  Sender: FDA-Public Use
  Company Number: 2008S1019884

PATIENT
  Age: 58 Year
  Sex: Female

DRUGS (2)
  1. OMEPRAZOLE [Suspect]
     Indication: DRUG USE FOR UNKNOWN INDICATION
     Dosage: 40 MG ONCE ORAL; 20 MG ONCE ORAL
     Route: 048
     Dates: start: 20071101, end: 20080201
  2. OMEPRAZOLE [Suspect]
     Indication: DRUG USE FOR UNKNOWN INDICATION
     Dosage: 40 MG ONCE ORAL; 20 MG ONCE ORAL
     Route: 048
     Dates: start: 20080201, end: 20080401

REACTIONS (3)
  - BREAST DISCHARGE [None]
  - OEDEMA [None]
  - WEIGHT INCREASED [None]
